FAERS Safety Report 9772224 (Version 1)
Quarter: 2013Q4

REPORT INFORMATION
  Report Type: Spontaneous
  Country: GR (occurrence: GR)
  Receive Date: 20131219
  Receipt Date: 20131219
  Transmission Date: 20140711
  Serious: Yes (Other)
  Sender: FDA-Public Use
  Company Number: GR-BAYER-2013-152576

PATIENT
  Age: 60 Year
  Sex: Female

DRUGS (1)
  1. SORAFENIB (RAF KINASE INHIBITOR) [Suspect]
     Indication: GALLBLADDER ADENOCARCINOMA
     Dosage: 400 MG, BID FOR 4 WEEKS FOLLOWED BY A 2-WEEK REST
     Route: 048

REACTIONS (3)
  - Off label use [None]
  - Gallbladder adenocarcinoma [None]
  - Nausea [None]
